FAERS Safety Report 25169021 (Version 4)
Quarter: 2025Q4

REPORT INFORMATION
  Report Type: Report from Study
  Country: US (occurrence: US)
  Receive Date: 20250407
  Receipt Date: 20251120
  Transmission Date: 20260119
  Serious: Yes (Hospitalization)
  Sender: STEMLINE THERAPEUTICS
  Company Number: US-STEMLINE THERAPEUTICS, INC-2025-STML-US001163

PATIENT

DRUGS (7)
  1. ORSERDU [Suspect]
     Active Substance: ELACESTRANT
     Indication: Breast cancer female
     Dosage: UNK, DAILY (MG)
     Route: 048
     Dates: start: 20250318
  2. ORSERDU [Suspect]
     Active Substance: ELACESTRANT
     Dosage: 258 MG, DAILY
     Route: 048
     Dates: start: 20250320
  3. ORSERDU [Suspect]
     Active Substance: ELACESTRANT
     Dosage: (86 MG - 2 TABLETS) DAILY
     Route: 048
  4. ORSERDU [Suspect]
     Active Substance: ELACESTRANT
     Dosage: 3 DOSAGE FORM (MG), DAILY (Q24)
     Route: 048
  5. ORSERDU [Suspect]
     Active Substance: ELACESTRANT
     Dosage: 345 MG
     Route: 048
  6. ORSERDU [Suspect]
     Active Substance: ELACESTRANT
     Dosage: 258 MG, DAILY
     Route: 048
     Dates: start: 20250813
  7. IBRANCE [Suspect]
     Active Substance: PALBOCICLIB
     Indication: Product used for unknown indication
     Dosage: UNK
     Route: 065

REACTIONS (11)
  - Syncope [Not Recovered/Not Resolved]
  - COVID-19 [Recovered/Resolved]
  - Malaise [Not Recovered/Not Resolved]
  - Blood potassium decreased [Not Recovered/Not Resolved]
  - Myalgia [Not Recovered/Not Resolved]
  - Brain fog [Not Recovered/Not Resolved]
  - Socioeconomic precarity [Unknown]
  - Arthralgia [Not Recovered/Not Resolved]
  - Diarrhoea [Not Recovered/Not Resolved]
  - Fatigue [Not Recovered/Not Resolved]
  - Product use issue [Unknown]

NARRATIVE: CASE EVENT DATE: 20250901
